FAERS Safety Report 22685722 (Version 2)
Quarter: 2025Q4

REPORT INFORMATION
  Report Type: Spontaneous
  Country: US (occurrence: US)
  Receive Date: 20230710
  Receipt Date: 20251224
  Transmission Date: 20260118
  Serious: No
  Sender: PADAGIS
  Company Number: US-PADAGIS-2023PAD00950

PATIENT

DRUGS (1)
  1. IMIQUIMOD [Suspect]
     Active Substance: IMIQUIMOD
     Indication: Product used for unknown indication
     Dosage: UNK
     Route: 065
     Dates: end: 202306

REACTIONS (1)
  - Maternal exposure during pregnancy [Unknown]
